FAERS Safety Report 10809122 (Version 1)
Quarter: 2015Q1

REPORT INFORMATION
  Report Type: Report from Study
  Country: US (occurrence: US)
  Receive Date: 20150217
  Receipt Date: 20150217
  Transmission Date: 20150721
  Serious: No
  Sender: FDA-Public Use
  Company Number: US-ABBVIE-14K-163-1215145-00

PATIENT
  Age: 31 Year
  Sex: Male

DRUGS (8)
  1. VALERIAN ROOT [Concomitant]
     Active Substance: VALERIAN
     Indication: INSOMNIA
  2. HUMIRA [Suspect]
     Active Substance: ADALIMUMAB
     Dates: start: 20140325
  3. WELLBUTRIN [Concomitant]
     Active Substance: BUPROPION HYDROCHLORIDE
     Indication: ANXIETY
  4. CALCIPOTRIENE. [Concomitant]
     Active Substance: CALCIPOTRIENE
     Indication: ECZEMA
     Dosage: USUALLY ONE APPLICATION EVERY OTHER DAY
     Route: 061
  5. MELATONIN [Concomitant]
     Active Substance: MELATONIN
     Indication: INSOMNIA
  6. TRIAMCINOLONE ACETONIDE. [Concomitant]
     Active Substance: TRIAMCINOLONE ACETONIDE
     Indication: ECZEMA
     Dosage: USUALLY ONE APPLICATION EVERY OTHER DAY
     Route: 061
  7. HUMIRA [Suspect]
     Active Substance: ADALIMUMAB
     Indication: COLITIS ULCERATIVE
     Dates: start: 20140311, end: 20140311
  8. TAZORAC [Concomitant]
     Active Substance: TAZAROTENE
     Indication: ECZEMA
     Dosage: USUALLY ONE APPLICATION EVERY OTHER DAY
     Route: 061

REACTIONS (11)
  - Injection site induration [Recovering/Resolving]
  - Weight decreased [Unknown]
  - Injection site erythema [Recovering/Resolving]
  - Injection site reaction [Not Recovered/Not Resolved]
  - Injection site warmth [Recovering/Resolving]
  - Haematochezia [Not Recovered/Not Resolved]
  - Frequent bowel movements [Not Recovered/Not Resolved]
  - Injection site rash [Recovering/Resolving]
  - Injection site pruritus [Not Recovered/Not Resolved]
  - Injection site swelling [Not Recovered/Not Resolved]
  - Therapeutic response decreased [Not Recovered/Not Resolved]

NARRATIVE: CASE EVENT DATE: 201403
